FAERS Safety Report 23146263 (Version 1)
Quarter: 2023Q4

REPORT INFORMATION
  Report Type: Spontaneous
  Country: GB (occurrence: GB)
  Receive Date: 20231104
  Receipt Date: 20231104
  Transmission Date: 20240110
  Serious: Yes (Life-Threatening, Hospitalization, Disabling, Other)
  Sender: FDA-Public Use
  Company Number: GB-MHRA-WEBRADR-202310260422533870-MFJCZ

PATIENT
  Age: 65 Year
  Sex: Female
  Weight: 90 kg

DRUGS (1)
  1. GABAPENTIN [Suspect]
     Active Substance: GABAPENTIN
     Indication: Neuralgia
     Dosage: 1200 MILLIGRAM
     Route: 048
     Dates: start: 20190620, end: 20200401

REACTIONS (6)
  - Seizure [Recovered/Resolved]
  - Brain oedema [Recovered/Resolved]
  - Amnesia [Recovered/Resolved]
  - Electric shock sensation [Recovered/Resolved]
  - Optic nerve injury [Not Recovered/Not Resolved]
  - Balance disorder [Recovered/Resolved]

NARRATIVE: CASE EVENT DATE: 20200102
